FAERS Safety Report 18570815 (Version 2)
Quarter: 2020Q4

REPORT INFORMATION
  Report Type: Report from Study
  Country: US (occurrence: US)
  Receive Date: 20201202
  Receipt Date: 20201216
  Transmission Date: 20210114
  Serious: Yes (Hospitalization)
  Sender: FDA-Public Use
  Company Number: US-TEVA-2020-US-1853932

PATIENT
  Age: 77 Year
  Sex: Female

DRUGS (17)
  1. CARBOPLATIN. [Suspect]
     Active Substance: CARBOPLATIN
     Indication: NEOPLASM
     Dosage: CARBOPLATIN 291 MG ADMINISTERED INTRAVENOUSLY
     Route: 042
     Dates: start: 20200903
  2. DEXLANSOPRAZOLE [Concomitant]
     Active Substance: DEXLANSOPRAZOLE
     Dosage: DELAYED RELEASE (DR) 60 MG (UNKNOWN TO ONGOING)
  3. SYSTANE ICAPS AREDS2 [Concomitant]
     Dosage: (UNKNOWN TO ONGOING)
     Route: 048
  4. COLACE [Concomitant]
     Active Substance: DOCUSATE SODIUM
     Dosage: (UNKNOWN TO ONGOING)
  5. MOTRIN [Concomitant]
     Active Substance: IBUPROFEN
     Indication: PAIN
     Dosage: EVERY 8 HOURS ORALLY/(UNKNOWN TO ONGOING)
     Route: 048
  6. NEULASTA [Concomitant]
     Active Substance: PEGFILGRASTIM
     Dosage: (UNKNOWN TO ONGOING)
  7. METAMUCIL [Concomitant]
     Active Substance: PLANTAGO SEED
     Dosage: 28% PACKET/(UNKNOWN TO ONGOING)
  8. ARTIFICIAL TEARS [Concomitant]
     Active Substance: GLYCERIN\HYPROMELLOSES\POLYETHYLENE GLYCOL 400
     Dosage: 0.1-0.3% SOLUTION
  9. VOLTAREN [Concomitant]
     Active Substance: DICLOFENAC SODIUM
     Dosage: (UNKNOWN TO ONGOING)
  10. TYLENOL [Concomitant]
     Active Substance: ACETAMINOPHEN
  11. BENADRYL [Concomitant]
     Active Substance: DIPHENHYDRAMINE HYDROCHLORIDE
     Dosage: (UNKNOWN TO ONGOING)
  12. CYMBALTA [Concomitant]
     Active Substance: DULOXETINE HYDROCHLORIDE
     Dosage: (UNKNOWN TO ONGOING)
  13. ALLEGRA [Concomitant]
     Active Substance: FEXOFENADINE HYDROCHLORIDE
     Dosage: (UNKNOWN TO ONGOING)
  14. MEGACE ES [Concomitant]
     Active Substance: MEGESTROL ACETATE
     Dosage: 625MG DAILY/(UNKNOWN TO ONGOING)
     Route: 046
  15. COMPAZINE [Concomitant]
     Active Substance: PROCHLORPERAZINE MALEATE
     Dosage: (UNKNOWN TO ONGOING)
  16. VITAMIN D3 [Concomitant]
     Active Substance: CHOLECALCIFEROL
     Dosage: (UNKNOWN TO ONGOING)
  17. GEMCITABINE. [Suspect]
     Active Substance: GEMCITABINE
     Indication: NEOPLASM
     Dosage: (800 MG/M2)
     Route: 042
     Dates: end: 20200903

REACTIONS (2)
  - Mucosal inflammation [Unknown]
  - Duodenitis [Recovering/Resolving]

NARRATIVE: CASE EVENT DATE: 20201106
